FAERS Safety Report 9272959 (Version 1)
Quarter: 2013Q2

REPORT INFORMATION
  Report Type: Spontaneous
  Country: US (occurrence: US)
  Receive Date: 20130506
  Receipt Date: 20130506
  Transmission Date: 20140414
  Serious: Yes (Hospitalization)
  Sender: FDA-Public Use
  Company Number: US-UCBSA-067227

PATIENT
  Age: 64 Year
  Sex: Female

DRUGS (6)
  1. NEUPRO [Suspect]
     Indication: PARKINSON^S DISEASE
     Route: 062
     Dates: start: 2012, end: 2012
  2. NEUPRO [Suspect]
     Indication: PARKINSON^S DISEASE
     Dosage: DOSE INCREASED
     Route: 062
     Dates: start: 2012, end: 2012
  3. AZILECT [Concomitant]
     Dosage: UNKNOWN DOSE
     Dates: end: 2012
  4. AZILECT [Concomitant]
     Dosage: UNKNOWN DOSE
     Dates: start: 2012
  5. MIRAPEX [Concomitant]
     Dosage: UNKNOWN DOSE
     Dates: end: 2012
  6. MIRAPEX [Concomitant]
     Dosage: UNKNOWN DOSE
     Dates: start: 2012

REACTIONS (11)
  - Parkinsonism [Unknown]
  - Tremor [Recovering/Resolving]
  - Weight decreased [Recovered/Resolved]
  - Application site pain [Unknown]
  - Application site erythema [Unknown]
  - Hallucination [Unknown]
  - Hyperhidrosis [Not Recovered/Not Resolved]
  - Asthenia [Not Recovered/Not Resolved]
  - Fall [Not Recovered/Not Resolved]
  - Feeding disorder [Not Recovered/Not Resolved]
  - Dyskinesia [Unknown]
